FAERS Safety Report 7122365-2 (Version None)
Quarter: 2010Q4

REPORT INFORMATION
  Report Type: 
  Country: None (occurrence: None)
  Receive Date: 20101112
  Receipt Date: 20101103
  Transmission Date: 20110411
  Serious: Yes (Disabling)
  Sender: FDA-Public Use
  Company Number: 2010MA004251

PATIENT
  Age: 87 Year
  Sex: Male
  Weight: 61.3 kg

DRUGS (9)
  1. TRAMADOL HYDROCHLORIDE [Suspect]
     Indication: NECK PAIN
     Dosage: 100 MG;BID;PO
     Route: 048
     Dates: start: 20100801, end: 20100901
  2. CO-BENELDOPA [Concomitant]
  3. EPILIM CHRONO [Concomitant]
  4. SIMVASTATIN [Concomitant]
  5. CITALOPRAM [Concomitant]
  6. ENTACAPONE [Concomitant]
  7. ACETYLSALICYLIC ACID [Concomitant]
  8. DUTASTERIDE [Concomitant]
  9. PREV MEDS [Concomitant]

REACTIONS (2)
  - CONDITION AGGRAVATED [None]
  - PARKINSON'S DISEASE [None]
